FAERS Safety Report 5356924-4 (Version None)
Quarter: 2007Q2

REPORT INFORMATION
  Report Type: 
  Country: None (occurrence: None)
  Receive Date: 20070614
  Receipt Date: 20070103
  Transmission Date: 20071010
  Serious: No
  Sender: FDA-Public Use
  Company Number: US-ASTRAZENECA-2007UW00151

PATIENT
  Age: 72 Year
  Sex: Female
  Weight: 57.6 kg

DRUGS (5)
  1. ATACAND HCT [Suspect]
     Dosage: 32/12.5 MG
     Route: 048
  2. THYROID TAB [Concomitant]
  3. PLAVIX [Concomitant]
  4. ZOCOR [Concomitant]
  5. FOSAMAX [Concomitant]

REACTIONS (4)
  - DIZZINESS [None]
  - DYSPHONIA [None]
  - ILL-DEFINED DISORDER [None]
  - OCULAR HYPERAEMIA [None]
